FAERS Safety Report 10566285 (Version 2)
Quarter: 2014Q4

REPORT INFORMATION
  Report Type: Spontaneous
  Country: BR (occurrence: BR)
  Receive Date: 20141105
  Receipt Date: 20141105
  Transmission Date: 20150529
  Serious: Yes (Other)
  Sender: FDA-Public Use
  Company Number: BR-SA-2014SA092702

PATIENT
  Age: 42 Year
  Sex: Female
  Weight: 90 kg

DRUGS (2)
  1. CLEXANE [Suspect]
     Active Substance: ENOXAPARIN SODIUM
     Indication: PLACENTAL INSUFFICIENCY
     Dosage: 1 SYRINGE PER DAY?APPLY IN ABDOMEN
     Route: 065
     Dates: start: 201403
  2. AAS [Suspect]
     Active Substance: ASPIRIN
     Indication: PLACENTAL INSUFFICIENCY
     Dosage: TAKES WITH WATER
     Route: 065
     Dates: start: 201403

REACTIONS (2)
  - Blood pressure abnormal [Unknown]
  - Exposure during pregnancy [Unknown]
